FAERS Safety Report 6388808-7 (Version None)
Quarter: 2009Q4

REPORT INFORMATION
  Report Type: 
  Country: None (occurrence: None)
  Receive Date: 20091005
  Receipt Date: 20090929
  Transmission Date: 20100525
  Serious: Yes (Hospitalization)
  Sender: FDA-Public Use
  Company Number: US-ALLERGAN-0911743US

PATIENT
  Sex: Male

DRUGS (4)
  1. TIMOLOL MALEATE [Suspect]
     Indication: GLAUCOMA
     Dosage: 1 GTT, Q12H
     Route: 047
     Dates: end: 20090708
  2. TIMOLOL MALEATE [Suspect]
     Indication: OCULAR HYPERTENSION
  3. XALATAN [Suspect]
     Indication: GLAUCOMA
     Dosage: 1 GTT, Q12H
     Route: 047
  4. XALATAN [Suspect]
     Indication: OCULAR HYPERTENSION

REACTIONS (2)
  - CARDIAC FAILURE [None]
  - CHRONIC OBSTRUCTIVE PULMONARY DISEASE [None]
